FAERS Safety Report 4714964-X (Version None)
Quarter: 2005Q3

REPORT INFORMATION
  Report Type: 
  Country: None (occurrence: None)
  Receive Date: 20050713
  Receipt Date: 20050629
  Transmission Date: 20060218
  Serious: Yes (Other)
  Sender: FDA-Public Use
  Company Number: 2005RR-00579

PATIENT
  Age: 32 Year
  Sex: Female

DRUGS (2)
  1. OFLOXACIN [Suspect]
     Indication: PELVIC INFLAMMATORY DISEASE
     Dosage: 400 MG, BID
  2. OMEPRAZOLE [Suspect]

REACTIONS (8)
  - ANXIETY [None]
  - DYSPNOEA [None]
  - EMOTIONAL DISTRESS [None]
  - PALPITATIONS [None]
  - PANIC ATTACK [None]
  - PHOTOPSIA [None]
  - PSYCHOTIC DISORDER [None]
  - TEARFULNESS [None]
